FAERS Safety Report 23708776 (Version 2)
Quarter: 2024Q3

REPORT INFORMATION
  Report Type: Spontaneous
  Country: US (occurrence: None)
  Receive Date: 20240404
  Receipt Date: 20240726
  Transmission Date: 20241016
  Serious: Yes (Other)
  Sender: ASTRAZENECA
  Company Number: 2024A078515

PATIENT
  Age: 67 Year
  Sex: Female

DRUGS (3)
  1. FULVESTRANT [Suspect]
     Active Substance: FULVESTRANT
     Route: 030
  2. IBRANCE [Suspect]
     Active Substance: PALBOCICLIB
     Route: 048
  3. PALBOCICLIB [Suspect]
     Active Substance: PALBOCICLIB

REACTIONS (8)
  - Drug resistance [Unknown]
  - Breast cancer stage IV [Unknown]
  - Paraesthesia [Unknown]
  - Pain in extremity [Unknown]
  - Restless legs syndrome [Unknown]
  - Constipation [Unknown]
  - Neutropenia [Unknown]
  - Drug ineffective [Unknown]
